FAERS Safety Report 11647281 (Version 8)
Quarter: 2017Q4

REPORT INFORMATION
  Report Type: Report from Study
  Country: CA (occurrence: CA)
  Receive Date: 20151021
  Receipt Date: 20171204
  Transmission Date: 20180320
  Serious: Yes (Other)
  Sender: FDA-Public Use
  Company Number: CA-ROCHE-1620521

PATIENT
  Age: 75 Year
  Sex: Male

DRUGS (11)
  1. ZYLOPRIM [Concomitant]
     Active Substance: ALLOPURINOL
     Route: 065
  2. ROSUVASTATIN. [Concomitant]
     Active Substance: ROSUVASTATIN
     Route: 065
  3. CANDESARTAN. [Concomitant]
     Active Substance: CANDESARTAN
     Route: 065
  4. FUROSEMIDE. [Concomitant]
     Active Substance: FUROSEMIDE
     Route: 065
  5. ACETYLSALICYLIC ACID [Concomitant]
     Active Substance: ASPIRIN
     Route: 065
  6. OXYGEN. [Concomitant]
     Active Substance: OXYGEN
  7. METOPROLOL. [Concomitant]
     Active Substance: METOPROLOL
     Route: 065
  8. ESBRIET [Suspect]
     Active Substance: PIRFENIDONE
     Indication: IDIOPATHIC PULMONARY FIBROSIS
     Route: 048
     Dates: start: 20150721
  9. ESBRIET [Suspect]
     Active Substance: PIRFENIDONE
     Route: 048
     Dates: start: 20150804
  10. AMLODIPINE [Concomitant]
     Active Substance: AMLODIPINE BESYLATE
     Route: 065
  11. ESBRIET [Suspect]
     Active Substance: PIRFENIDONE
     Route: 048
     Dates: start: 20150728

REACTIONS (8)
  - Pneumonia [Recovering/Resolving]
  - Blister [Recovered/Resolved]
  - Oxygen saturation decreased [Not Recovered/Not Resolved]
  - Depression [Unknown]
  - Rash [Not Recovered/Not Resolved]
  - Eating disorder [Unknown]
  - Constipation [Recovered/Resolved]
  - Forced vital capacity decreased [Unknown]

NARRATIVE: CASE EVENT DATE: 20150805
